FAERS Safety Report 5282801-3 (Version None)
Quarter: 2007Q1

REPORT INFORMATION
  Report Type: 
  Country: None (occurrence: None)
  Receive Date: 20070329
  Receipt Date: 20070329
  Transmission Date: 20070707
  Serious: Yes (Other)
  Sender: FDA-Public Use
  Company Number: None

PATIENT
  Age: 68 Year
  Sex: Female
  Weight: 55.3388 kg

DRUGS (10)
  1. REMICADE [Suspect]
     Indication: RHEUMATOID ARTHRITIS
     Dosage: 170MG IV
     Route: 042
     Dates: start: 20070312
  2. REMICADE [Suspect]
     Indication: RHEUMATOID ARTHRITIS
     Dosage: 170MG IV
     Route: 042
     Dates: start: 20070326
  3. FOLIC ACID [Concomitant]
  4. WARFARIN SODIUM [Concomitant]
  5. COREG [Concomitant]
  6. PREDNISONE [Concomitant]
  7. LEFLUONOMIDE [Concomitant]
  8. SULFAMETHOXAZOLE [Concomitant]
  9. PREVACID [Concomitant]
  10. CEREBREX [Concomitant]

REACTIONS (2)
  - INFUSION RELATED REACTION [None]
  - URTICARIA [None]
